FAERS Safety Report 9454851 (Version 2)
Quarter: 2013Q3

REPORT INFORMATION
  Report Type: Spontaneous
  Country: US (occurrence: US)
  Receive Date: 20130813
  Receipt Date: 20130826
  Transmission Date: 20140515
  Serious: No
  Sender: FDA-Public Use
  Company Number: US-009507513-1308USA004741

PATIENT
  Age: 25 Year
  Sex: Female
  Weight: 96.6 kg

DRUGS (1)
  1. IMPLANON [Suspect]
     Indication: CONTRACEPTION
     Dosage: UNK, 1 ROD
     Route: 059
     Dates: start: 20100811

REACTIONS (2)
  - Device deployment issue [Unknown]
  - Medical device complication [Not Recovered/Not Resolved]
